FAERS Safety Report 8940645 (Version 1)
Quarter: 2012Q4

REPORT INFORMATION
  Report Type: 
  Country: CN (occurrence: CN)
  Receive Date: 20121203
  Receipt Date: 20121203
  Transmission Date: 20130627
  Serious: Yes (Other)
  Sender: FDA-Public Use
  Company Number: CN-ABBOTT-12P-035-1014820-00

PATIENT
  Age: 14 Year
  Sex: Male

DRUGS (1)
  1. DEPAKINE CHRONO [Suspect]
     Indication: EPILEPSY
     Dosage: 500 mg daily
     Route: 048
     Dates: start: 201209

REACTIONS (7)
  - Loss of consciousness [Unknown]
  - Epilepsy [Recovered/Resolved]
  - Headache [Unknown]
  - Coma [Unknown]
  - Tremor [Unknown]
  - Tremor [Unknown]
  - Fall [Unknown]
